FAERS Safety Report 15321429 (Version 1)
Quarter: 2018Q3

REPORT INFORMATION
  Report Type: Spontaneous
  Country: US (occurrence: US)
  Receive Date: 20180821
  Receipt Date: 20180821
  Transmission Date: 20181010
  Serious: Yes (Other)
  Sender: FDA-Public Use
  Company Number: None

PATIENT
  Age: 72 Year
  Sex: Female
  Weight: 63.05 kg

DRUGS (12)
  1. ATORVASTATIN [Concomitant]
     Active Substance: ATORVASTATIN
  2. HYDROCHLOROTHIAZIDE. [Concomitant]
     Active Substance: HYDROCHLOROTHIAZIDE
  3. VALSARTAN/HCTZ 160?25MG TAB ; PILL IMPRINT VH3 [Suspect]
     Active Substance: HYDROCHLOROTHIAZIDE\VALSARTAN
     Indication: BLOOD PRESSURE MEASUREMENT
     Dosage: ?          QUANTITY:1 TAB;?
     Route: 048
     Dates: start: 201503, end: 20180706
  4. CLONAZEPAM. [Concomitant]
     Active Substance: CLONAZEPAM
  5. LOTRADINE [Concomitant]
  6. OMEPRAZOLE DR [Concomitant]
     Active Substance: OMEPRAZOLE
  7. POTASSIUM CL ER [Concomitant]
     Active Substance: POTASSIUM CHLORIDE
  8. IRBESARTAN. [Concomitant]
     Active Substance: IRBESARTAN
  9. ATENOLOL. [Concomitant]
     Active Substance: ATENOLOL
  10. WOMENS MULTIVITAMIN [Concomitant]
  11. CALCIUM +D [Concomitant]
     Active Substance: CALCIUM\VITAMIN D
  12. ANASTROZOLE. [Concomitant]
     Active Substance: ANASTROZOLE

REACTIONS (2)
  - Breast cancer [None]
  - Product substitution issue [None]

NARRATIVE: CASE EVENT DATE: 201803
